FAERS Safety Report 11635106 (Version 3)
Quarter: 2016Q2

REPORT INFORMATION
  Report Type: Report from Study
  Country: US (occurrence: US)
  Receive Date: 20151015
  Receipt Date: 20160623
  Transmission Date: 20160815
  Serious: Yes (Hospitalization, Other)
  Sender: FDA-Public Use
  Company Number: US-ACTELION-A-NJ2015-125493

PATIENT
  Age: 52 Year
  Sex: Female

DRUGS (1)
  1. TRACLEER [Suspect]
     Active Substance: BOSENTAN
     Indication: PULMONARY ARTERIAL HYPERTENSION
     Dosage: 125 MG, BID
     Route: 048
     Dates: start: 20160330

REACTIONS (8)
  - Forearm fracture [Unknown]
  - Syncope [Unknown]
  - Pain [Unknown]
  - Upper limb fracture [Unknown]
  - Hernia perforation [Unknown]
  - Fall [Unknown]
  - Rib fracture [Unknown]
  - Wound [Unknown]

NARRATIVE: CASE EVENT DATE: 20160610
